FAERS Safety Report 9618052 (Version 1)
Quarter: 2013Q4

REPORT INFORMATION
  Report Type: Spontaneous
  Country: US (occurrence: US)
  Receive Date: 20131012
  Receipt Date: 20131012
  Transmission Date: 20140711
  Serious: Yes (Death)
  Sender: FDA-Public Use
  Company Number: US-ROCHE-1288428

PATIENT
  Sex: Female

DRUGS (1)
  1. XELODA [Suspect]
     Indication: BREAST CANCER FEMALE
     Dosage: 5 IN THE AM 5 IN THE PM, 14 OUT OF 21 DAYS
     Route: 065
     Dates: start: 20130830

REACTIONS (1)
  - Death [Fatal]
